FAERS Safety Report 8326659-4 (Version None)
Quarter: 2012Q2

REPORT INFORMATION
  Report Type: 
  Country: None (occurrence: None)
  Receive Date: 20120501
  Receipt Date: 20090804
  Transmission Date: 20120825
  Serious: No
  Sender: FDA-Public Use
  Company Number: US-TEVA-2009009191

PATIENT
  Sex: Male
  Weight: 118.04 kg

DRUGS (6)
  1. NUVIGIL [Suspect]
     Dosage: 125 MILLIGRAM;
     Route: 048
     Dates: start: 20090724
  2. LITHIUM CARBONATE [Concomitant]
     Indication: BIPOLAR DISORDER
     Dates: start: 19970101
  3. ABILIFY [Concomitant]
     Indication: BIPOLAR DISORDER
     Dates: start: 20010101
  4. NUVIGIL [Suspect]
     Indication: LETHARGY
     Dosage: 150 MILLIGRAM;
     Route: 048
     Dates: start: 20090713, end: 20090717
  5. NUVIGIL [Suspect]
     Indication: SUDDEN ONSET OF SLEEP
     Dosage: 250 MILLIGRAM;
     Route: 048
     Dates: start: 20090718, end: 20090723
  6. DEPAKOTE [Concomitant]
     Indication: BIPOLAR DISORDER
     Dates: start: 20050101

REACTIONS (6)
  - FATIGUE [None]
  - BIPOLAR DISORDER [None]
  - DISTURBANCE IN ATTENTION [None]
  - DRUG INEFFECTIVE FOR UNAPPROVED INDICATION [None]
  - THIRST [None]
  - DIZZINESS [None]
